FAERS Safety Report 11898712 (Version 3)
Quarter: 2016Q1

REPORT INFORMATION
  Report Type: Spontaneous
  Country: US (occurrence: US)
  Receive Date: 20160108
  Receipt Date: 20160324
  Transmission Date: 20160526
  Serious: Yes (Hospitalization, Other)
  Sender: FDA-Public Use
  Company Number: US-GLAXOSMITHKLINE-US2016001821

PATIENT
  Age: 64 Year
  Sex: Female

DRUGS (10)
  1. FUROSEMIDE. [Concomitant]
     Active Substance: FUROSEMIDE
  2. METOPROLOL TARTRATE. [Concomitant]
     Active Substance: METOPROLOL TARTRATE
  3. VENTOLIN HFA [Suspect]
     Active Substance: ALBUTEROL SULFATE
     Indication: BRONCHITIS CHRONIC
     Route: 055
  4. LOSARTAN. [Concomitant]
     Active Substance: LOSARTAN
  5. CLOPIDOGREL SULFATE [Concomitant]
     Active Substance: CLOPIDOGREL BISULFATE
  6. CRESTOR [Concomitant]
     Active Substance: ROSUVASTATIN CALCIUM
  7. HYDRALAZINE HYDROCHLORIDE. [Concomitant]
     Active Substance: HYDRALAZINE HYDROCHLORIDE
  8. ISOSORBIDE. [Concomitant]
     Active Substance: ISOSORBIDE
  9. ALBUTEROL SULFATE. [Concomitant]
     Active Substance: ALBUTEROL SULFATE
  10. KLOR-CON [Concomitant]
     Active Substance: POTASSIUM CHLORIDE

REACTIONS (13)
  - Myocardial infarction [Recovering/Resolving]
  - Product quality issue [Unknown]
  - Drug dose omission [Unknown]
  - Stent placement [Recovering/Resolving]
  - Hypertension [Recovering/Resolving]
  - Wheezing [Recovered/Resolved]
  - Muscular weakness [Unknown]
  - Feeling cold [Unknown]
  - Blood triglycerides increased [Recovered/Resolved]
  - Device use error [Unknown]
  - Feeling hot [Unknown]
  - Emergency care [Unknown]
  - Dyspnoea [Recovered/Resolved]

NARRATIVE: CASE EVENT DATE: 2009
